FAERS Safety Report 7102226-5 (Version None)
Quarter: 2010Q4

REPORT INFORMATION
  Report Type: 
  Country: None (occurrence: None)
  Receive Date: 20101115
  Receipt Date: 20101101
  Transmission Date: 20110411
  Serious: No
  Sender: FDA-Public Use
  Company Number: US-BIOGENIDEC-2010BI033912

PATIENT
  Age: 58 Year
  Sex: Female

DRUGS (10)
  1. TYSABRI [Suspect]
     Indication: MULTIPLE SCLEROSIS
     Route: 042
     Dates: start: 20100701
  2. TRAMADOL HCL [Concomitant]
     Indication: PAIN
     Route: 048
  3. PROMETHEZINE [Concomitant]
     Indication: MOTION SICKNESS
     Route: 048
  4. NYSTATIN [Concomitant]
     Route: 061
  5. ERGOCALCIFEROL [Concomitant]
     Dosage: DOSE UNIT:50000
  6. GLARGINE [Concomitant]
     Indication: DIABETES MELLITUS
     Route: 058
  7. MIRTAZAPINE [Concomitant]
  8. SERTRALINE HYDROCHLORIDE [Concomitant]
     Route: 048
  9. LISINOPRIL [Concomitant]
  10. TOLTERODINE TARTRATE [Concomitant]

REACTIONS (1)
  - MULTIPLE SCLEROSIS [None]
